FAERS Safety Report 4998667-2 (Version None)
Quarter: 2006Q2

REPORT INFORMATION
  Report Type: 
  Country: None (occurrence: None)
  Receive Date: 20060508
  Receipt Date: 20060424
  Transmission Date: 20061013
  Serious: Yes (Life-Threatening)
  Sender: FDA-Public Use
  Company Number: ES-2006-009882

PATIENT
  Age: 35 Year
  Sex: Female
  Weight: 50 kg

DRUGS (1)
  1. MICROGYNON (21) (ETHINYLESTRADIOL, LEVONORGESTREL) COATED TABLET [Suspect]
     Dosage: 1 TAB (S), ORAL
     Route: 048
     Dates: start: 20051201, end: 20060213

REACTIONS (4)
  - ANTIPHOSPHOLIPID ANTIBODIES POSITIVE [None]
  - CARDIOLIPIN ANTIBODY POSITIVE [None]
  - MESENTERIC ARTERY THROMBOSIS [None]
  - PORTAL VEIN THROMBOSIS [None]
